FAERS Safety Report 7955090-6 (Version None)
Quarter: 2011Q4

REPORT INFORMATION
  Report Type: 
  Country: None (occurrence: None)
  Receive Date: 20111202
  Receipt Date: 20111129
  Transmission Date: 20120403
  Serious: Yes (Death, Life-Threatening, Hospitalization)
  Sender: FDA-Public Use
  Company Number: JP-B.I. PHARMACEUTICALS,INC./RIDGEFIELD-2011-BP-24644NB

PATIENT
  Sex: Male
  Weight: 65 kg

DRUGS (6)
  1. LAMISIL [Concomitant]
     Indication: ONYCHOMYCOSIS
     Dosage: 125 MG
     Route: 048
     Dates: start: 20080827, end: 20110714
  2. PRADAXA [Suspect]
     Indication: CEREBROVASCULAR ACCIDENT PROPHYLAXIS
     Dosage: 220 MG
     Route: 048
     Dates: start: 20110616, end: 20110714
  3. PRADAXA [Suspect]
     Dosage: 220 MG
     Route: 048
  4. ACTOS [Concomitant]
     Indication: DIABETES MELLITUS
     Dosage: 30 MG
     Route: 048
     Dates: start: 20100708, end: 20110714
  5. LENDORMIN D/BROTIZOLAM [Concomitant]
     Indication: INSOMNIA
     Dosage: 0.25 MG
     Route: 048
     Dates: start: 20080827, end: 20110714
  6. PAXIL [Concomitant]
     Indication: STEREOTYPY
     Dosage: 20 MG
     Route: 048
     Dates: start: 20080827, end: 20110714

REACTIONS (2)
  - CEREBRAL HAEMORRHAGE [None]
  - PNEUMONIA ASPIRATION [None]
